APPROVED DRUG PRODUCT: INDOMETHACIN
Active Ingredient: INDOMETHACIN
Strength: 25MG
Dosage Form/Route: CAPSULE;ORAL
Application: A091401 | Product #001
Applicant: SUN PHARMACEUTICAL INDUSTRIES INC
Approved: Mar 28, 2013 | RLD: No | RS: No | Type: DISCN